FAERS Safety Report 5981250-X (Version None)
Quarter: 2008Q4

REPORT INFORMATION
  Report Type: 
  Country: None (occurrence: None)
  Receive Date: 20081205
  Receipt Date: 20081126
  Transmission Date: 20090506
  Serious: Yes (Other)
  Sender: FDA-Public Use
  Company Number: JP-SANOFI-SYNTHELABO-A01200815626

PATIENT
  Age: 52 Year
  Sex: Female

DRUGS (3)
  1. FLUOROURACIL [Concomitant]
  2. ELPLAT [Suspect]
     Indication: RECTAL CANCER STAGE I
     Route: 042
  3. LEUCOVORIN CALCIUM [Concomitant]

REACTIONS (1)
  - BONE MARROW FAILURE [None]
